FAERS Safety Report 7653011-7 (Version None)
Quarter: 2011Q3

REPORT INFORMATION
  Report Type: 
  Country: None (occurrence: None)
  Receive Date: 20110803
  Receipt Date: 20110803
  Transmission Date: 20111222
  Serious: Yes (Hospitalization)
  Sender: FDA-Public Use
  Company Number: IT-ROCHE-790423

PATIENT
  Sex: Female

DRUGS (8)
  1. LEXOTAN [Concomitant]
     Route: 048
  2. PEGASYS [Suspect]
     Route: 058
     Dates: start: 20110111, end: 20110705
  3. LEVOTHYROXINE SODIUM [Concomitant]
     Route: 048
  4. AMITRIPTYLINE HCL [Concomitant]
     Route: 048
  5. ZOLOFT [Concomitant]
     Route: 048
  6. URSODESOXYCHOLIC ACID [Concomitant]
     Route: 048
  7. REBETOL [Suspect]
     Route: 048
     Dates: start: 20110111, end: 20110705
  8. OMEPRAZOLE [Concomitant]
     Route: 048

REACTIONS (6)
  - SUBARACHNOID HAEMORRHAGE [None]
  - PSYCHOMOTOR SKILLS IMPAIRED [None]
  - GRAVITATIONAL OEDEMA [None]
  - AGGRESSION [None]
  - ASTHENIA [None]
  - DROP ATTACKS [None]
